FAERS Safety Report 25390020 (Version 1)
Quarter: 2025Q2

REPORT INFORMATION
  Report Type: Spontaneous
  Country: US (occurrence: US)
  Receive Date: 20250603
  Receipt Date: 20250603
  Transmission Date: 20250716
  Serious: Yes (Other)
  Sender: OTSUKA
  Company Number: US-OTSUKA-2025_012974

PATIENT
  Age: 45 Year
  Sex: Female

DRUGS (1)
  1. REXULTI [Suspect]
     Active Substance: BREXPIPRAZOLE
     Indication: Depression
     Dosage: 0.5 MG, 1 TABLET DAILY
     Route: 048
     Dates: start: 202503, end: 202503

REACTIONS (4)
  - Hallucination, tactile [Recovered/Resolved]
  - Head discomfort [Recovered/Resolved]
  - Sleep disorder [Recovered/Resolved]
  - Drug ineffective [Recovered/Resolved]

NARRATIVE: CASE EVENT DATE: 20250301
